FAERS Safety Report 8085997-3 (Version None)
Quarter: 2012Q1

REPORT INFORMATION
  Report Type: 
  Country: None (occurrence: None)
  Receive Date: 20120128
  Receipt Date: 20110412
  Transmission Date: 20120608
  Serious: No
  Sender: FDA-Public Use
  Company Number: US-ABBOTT-11P-163-0718916-00

PATIENT
  Sex: Female
  Weight: 60.382 kg

DRUGS (7)
  1. APRISO [Concomitant]
     Indication: CROHN'S DISEASE
  2. ELAVIL [Concomitant]
     Indication: CROHN'S DISEASE
  3. HUMIRA [Suspect]
     Indication: CROHN'S DISEASE
     Dates: start: 20090701, end: 20100504
  4. SINGULAIR [Concomitant]
  5. PREDNISONE TAB [Concomitant]
     Indication: CROHN'S DISEASE
  6. OMEPRAZOLE [Concomitant]
     Indication: PRODUCT USED FOR UNKNOWN INDICATION
  7. SINGULAIR [Concomitant]
     Indication: ASTHMA

REACTIONS (4)
  - ARTHRALGIA [None]
  - SERONEGATIVE ARTHRITIS [None]
  - LUPUS-LIKE SYNDROME [None]
  - MOBILITY DECREASED [None]
